FAERS Safety Report 9381034 (Version 1)
Quarter: 2013Q3

REPORT INFORMATION
  Report Type: Spontaneous
  Country: US (occurrence: US)
  Receive Date: 20130703
  Receipt Date: 20130703
  Transmission Date: 20140515
  Serious: No
  Sender: FDA-Public Use
  Company Number: 2006BI006544

PATIENT
  Age: 32 Year
  Sex: Female

DRUGS (6)
  1. AVONEX [Suspect]
     Indication: MULTIPLE SCLEROSIS
     Route: 030
     Dates: start: 20020815, end: 200308
  2. AVONEX [Suspect]
     Indication: MULTIPLE SCLEROSIS
     Dates: start: 200308, end: 20080107
  3. AMITRIPTYLINE [Concomitant]
     Indication: PAIN
  4. BETASERON [Concomitant]
  5. COPAXONE [Concomitant]
     Dates: start: 2011
  6. RITUXIMAB [Concomitant]

REACTIONS (12)
  - Incontinence [Not Recovered/Not Resolved]
  - Bladder spasm [Not Recovered/Not Resolved]
  - Loss of consciousness [Recovered/Resolved]
  - Peroneal nerve palsy [Not Recovered/Not Resolved]
  - Influenza like illness [Recovered/Resolved]
  - Muscle tightness [Recovered/Resolved]
  - Anxiety [Not Recovered/Not Resolved]
  - Muscle spasticity [Not Recovered/Not Resolved]
  - Pain in extremity [Recovered/Resolved]
  - Drug ineffective [Recovered/Resolved]
  - Muscular weakness [Not Recovered/Not Resolved]
  - Multiple sclerosis relapse [Unknown]
